FAERS Safety Report 17399122 (Version 3)
Quarter: 2020Q1

REPORT INFORMATION
  Report Type: Spontaneous
  Country: US (occurrence: US)
  Receive Date: 20200210
  Receipt Date: 20200218
  Transmission Date: 20200409
  Serious: Yes (Other)
  Sender: FDA-Public Use
  Company Number: US-CELGENEUS-USA-20200201755

PATIENT
  Age: 67 Year
  Sex: Female

DRUGS (3)
  1. OTEZLA [Suspect]
     Active Substance: APREMILAST
     Indication: PSORIATIC ARTHROPATHY
     Dosage: 60 MILLIGRAM
     Route: 048
     Dates: start: 20180721
  2. METHOTREXATE. [Concomitant]
     Active Substance: METHOTREXATE
     Indication: COUGH
     Route: 065
  3. OTEZLA [Suspect]
     Active Substance: APREMILAST
     Dosage: 30 MILLIGRAM
     Route: 048
     Dates: start: 20200102

REACTIONS (4)
  - Upper respiratory tract infection [Unknown]
  - Allergic cough [Unknown]
  - Nausea [Unknown]
  - Back disorder [Unknown]

NARRATIVE: CASE EVENT DATE: 20200203
